FAERS Safety Report 7279961-1 (Version None)
Quarter: 2011Q1

REPORT INFORMATION
  Report Type: 
  Country: None (occurrence: None)
  Receive Date: 20110125
  Receipt Date: 20110118
  Transmission Date: 20110831
  Serious: Yes (Other)
  Sender: FDA-Public Use
  Company Number: 20108930

PATIENT
  Sex: Female

DRUGS (1)
  1. LIORESAL [Suspect]
     Indication: MUSCLE SPASTICITY
     Dosage: 175.7 MCG, DAILY, INTRATHECAL
     Route: 037

REACTIONS (10)
  - INTRACRANIAL HYPOTENSION [None]
  - INCISION SITE COMPLICATION [None]
  - CONDITION AGGRAVATED [None]
  - DEVICE OCCLUSION [None]
  - DRUG EFFECT DECREASED [None]
  - IMPLANT SITE EFFUSION [None]
  - SEROMA [None]
  - MUSCLE SPASTICITY [None]
  - DEVICE CONNECTION ISSUE [None]
  - INTRACRANIAL PRESSURE INCREASED [None]
